FAERS Safety Report 18677274 (Version 2)
Quarter: 2022Q2

REPORT INFORMATION
  Report Type: Spontaneous
  Country: US (occurrence: US)
  Receive Date: 20201229
  Receipt Date: 20220427
  Transmission Date: 20220720
  Serious: No
  Sender: FDA-Public Use
  Company Number: US-PFIZER INC-2020044375

PATIENT
  Age: 68 Year
  Sex: Female
  Weight: 65.77 kg

DRUGS (3)
  1. CHANTIX [Suspect]
     Active Substance: VARENICLINE TARTRATE
     Indication: Smoking cessation therapy
     Dosage: 1 MG, 2X/DAY [1MG TABLETS BY MOUTH TWICE DAILY]
     Route: 048
  2. CHANTIX [Suspect]
     Active Substance: VARENICLINE TARTRATE
     Dosage: 1 MG, 2X/DAY
  3. CHANTIX [Suspect]
     Active Substance: VARENICLINE TARTRATE
     Dosage: 1 MG, 2X/DAY [ONE TABLET TWICE DAILY BY MOUTH]
     Route: 048

REACTIONS (2)
  - Intentional product misuse [Not Recovered/Not Resolved]
  - Weight decreased [Unknown]
